FAERS Safety Report 11539161 (Version 2)
Quarter: 2015Q4

REPORT INFORMATION
  Report Type: Spontaneous
  Country: FR (occurrence: FR)
  Receive Date: 20150923
  Receipt Date: 20151028
  Transmission Date: 20160304
  Serious: Yes (Hospitalization)
  Sender: FDA-Public Use
  Company Number: FR-ACCORD-033838

PATIENT
  Age: 59 Year
  Sex: Female

DRUGS (12)
  1. ONDANSETRON ACCORD [Suspect]
     Active Substance: ONDANSETRON
     Indication: PREMEDICATION
     Dosage: STRENGTH: 2MG/ML
     Route: 042
     Dates: start: 20150819, end: 20150819
  2. CERIS [Concomitant]
     Active Substance: TROSPIUM CHLORIDE
  3. PARACETAMOL [Concomitant]
     Active Substance: ACETAMINOPHEN
  4. PRIMPERAN [Concomitant]
     Active Substance: METOCLOPRAMIDE HYDROCHLORIDE
     Dosage: SCORED TABLET
     Route: 048
     Dates: start: 20150819, end: 20150819
  5. INEXIUM [Concomitant]
     Active Substance: ESOMEPRAZOLE
  6. BLEOMYCINE BELLON [Suspect]
     Active Substance: BLEOMYCIN SULFATE
     Indication: HODGKIN^S DISEASE
     Dosage: STRENGTH: 15 MG
     Route: 042
     Dates: start: 20150819, end: 20150819
  7. ADRIBLASTINE [Suspect]
     Active Substance: DOXORUBICIN
     Indication: HODGKIN^S DISEASE
     Dosage: STRENGTH: 50 MG
     Route: 042
     Dates: start: 20150819, end: 20150819
  8. PLAQUENIL [Concomitant]
     Active Substance: HYDROXYCHLOROQUINE SULFATE
     Dates: end: 20150818
  9. DACARBAZINE MEDAC [Concomitant]
     Active Substance: DACARBAZINE
     Dosage: STRENGTH: 500 MG
     Route: 042
     Dates: start: 20150819, end: 20150820
  10. VELBE [Suspect]
     Active Substance: VINBLASTINE SULFATE
     Indication: HODGKIN^S DISEASE
     Dosage: STRENGTH: 10 MG
     Route: 042
     Dates: start: 20150819, end: 20150819
  11. METHYLPREDNISOLONE MYLAN [Concomitant]
     Active Substance: METHYLPREDNISOLONE
     Route: 042
     Dates: start: 20150819, end: 20150819
  12. EMEND [Concomitant]
     Active Substance: APREPITANT
     Dosage: 160 MG THE FIRST DAY THEN 80 MG THE SECOND AND THE THIRD DAY
     Route: 048
     Dates: start: 20150819, end: 20150821

REACTIONS (4)
  - Raynaud^s phenomenon [Unknown]
  - Chills [Recovered/Resolved]
  - Oxygen saturation decreased [Recovered/Resolved]
  - Pyrexia [Recovered/Resolved]

NARRATIVE: CASE EVENT DATE: 20150819
